FAERS Safety Report 6346289-3 (Version None)
Quarter: 2009Q3

REPORT INFORMATION
  Report Type: 
  Country: None (occurrence: None)
  Receive Date: 20090909
  Receipt Date: 20090828
  Transmission Date: 20100115
  Serious: Yes (Hospitalization, Other)
  Sender: FDA-Public Use
  Company Number: PHHY2009FR36661

PATIENT
  Age: 77 Year
  Sex: Female

DRUGS (4)
  1. COTAREG [Suspect]
     Indication: HYPERTENSION
     Dosage: UNK
     Dates: end: 20090723
  2. PROCORALAN [Suspect]
     Dosage: UNK
     Dates: start: 20090101, end: 20090729
  3. ESCITALOPRAM [Suspect]
     Indication: ANXIETY
     Dosage: 1 DF, QD
  4. NICARDIPINE HYDROCHLORIDE [Concomitant]
     Dosage: UNK
     Dates: end: 20090729

REACTIONS (5)
  - FEELING ABNORMAL [None]
  - HYPONATRAEMIA [None]
  - HYPOXIA [None]
  - JOINT INJURY [None]
  - SKELETAL INJURY [None]
